FAERS Safety Report 5676551-9 (Version None)
Quarter: 2008Q1

REPORT INFORMATION
  Report Type: 
  Country: None (occurrence: None)
  Receive Date: 20080318
  Receipt Date: 20080304
  Transmission Date: 20080703
  Serious: Yes (Hospitalization)
  Sender: FDA-Public Use
  Company Number: MPS1-1000033

PATIENT
  Age: 6 Year
  Sex: Male

DRUGS (2)
  1. ALDURAZYME [Suspect]
     Indication: MUCOPOLYSACCHARIDOSIS I
     Dosage: 0.51 MG/KG, 1X/W, INTRAVENOUS
     Route: 042
     Dates: start: 20061117
  2. LEVOTHYROXINE SODIUM [Concomitant]

REACTIONS (2)
  - CATHETER RELATED COMPLICATION [None]
  - PNEUMONIA BACTERIAL [None]
